FAERS Safety Report 16579697 (Version 1)
Quarter: 2019Q3

REPORT INFORMATION
  Report Type: Spontaneous
  Country: BR (occurrence: BR)
  Receive Date: 20190716
  Receipt Date: 20190716
  Transmission Date: 20191004
  Serious: Yes (Other)
  Sender: FDA-Public Use
  Company Number: BR-CELGENEUS-BRA-20190704853

PATIENT
  Sex: Female

DRUGS (1)
  1. VIDAZA [Suspect]
     Active Substance: AZACITIDINE
     Indication: MYELODYSPLASTIC SYNDROME
     Route: 058
     Dates: start: 20190606

REACTIONS (4)
  - Platelet count abnormal [Unknown]
  - Autoimmune disorder [Unknown]
  - Anaemia [Unknown]
  - Immunosuppression [Unknown]

NARRATIVE: CASE EVENT DATE: 2019
